FAERS Safety Report 19030167 (Version 1)
Quarter: 2021Q1

REPORT INFORMATION
  Report Type: Spontaneous
  Country: US (occurrence: US)
  Receive Date: 20210318
  Receipt Date: 20210318
  Transmission Date: 20210420
  Serious: No
  Sender: FDA-Public Use
  Company Number: None

PATIENT
  Age: 32 Year
  Sex: Female
  Weight: 83.25 kg

DRUGS (13)
  1. TRINTELLIX [Suspect]
     Active Substance: VORTIOXETINE HYDROBROMIDE
     Indication: DEPRESSION
     Dosage: ?          QUANTITY:1 TABLET(S);?
     Route: 048
     Dates: start: 20210225, end: 20210315
  2. CETIRIZINE [Concomitant]
     Active Substance: CETIRIZINE HYDROCHLORIDE
  3. PROPRANOLOL 60 MG 24HR CAPSULE [Concomitant]
  4. QUETAPINE FUMARATE 50MG TB24 EXTENDED RELEASE [Concomitant]
  5. KETOCONAZOLE 2% SHAMPOO [Concomitant]
     Active Substance: KETOCONAZOLE
  6. CETIRIZINE [Concomitant]
     Active Substance: CETIRIZINE HYDROCHLORIDE
  7. BUSPIRONE 15MG TABLET [Concomitant]
  8. BUTALBITAL?ACETAMINOPHEN?CAFFEINE 50?300?40 MG [Concomitant]
  9. DAPSONE 7.5% GEL [Concomitant]
  10. AMITRIPTYLINE 75MG TABLET [Concomitant]
  11. CHOLECALCIFEROL (VITAMIN D3) 1000 UNITS CAPS [Concomitant]
  12. FLUTICASONE 50 MCG/ACT NASAL SPRAY [Concomitant]
  13. GABAPENTIN 300 MG CAPSULE [Concomitant]
     Active Substance: GABAPENTIN

REACTIONS (3)
  - Loss of libido [None]
  - Anxiety [None]
  - Condition aggravated [None]

NARRATIVE: CASE EVENT DATE: 20210312
